FAERS Safety Report 24336955 (Version 1)
Quarter: 2024Q3

REPORT INFORMATION
  Report Type: Spontaneous
  Country: US (occurrence: US)
  Receive Date: 20240919
  Receipt Date: 20240919
  Transmission Date: 20241017
  Serious: Yes (Other)
  Sender: MERCK
  Company Number: US-009507513-2409USA005137

PATIENT
  Sex: Female

DRUGS (5)
  1. WINREVAIR [Suspect]
     Active Substance: SOTATERCEPT-CSRK
     Indication: Product used for unknown indication
     Dosage: 1.6 MILLILITER
     Dates: start: 2024
  2. WINREVAIR [Suspect]
     Active Substance: SOTATERCEPT-CSRK
     Dosage: 0.7 MILLILITER
     Dates: start: 2024
  3. REMODULIN [Suspect]
     Active Substance: TREPROSTINIL
     Indication: Pulmonary arterial hypertension
     Dosage: STRENGTH 2.5 MG/ML
     Route: 041
     Dates: start: 202403
  4. REMODULIN [Suspect]
     Active Substance: TREPROSTINIL
     Dosage: STRENGTH 2.5 MG/ML, 0.028 MICROGRAM PER KILOGRAM
     Route: 042
     Dates: start: 2024
  5. TADALAFIL [Concomitant]
     Active Substance: TADALAFIL

REACTIONS (3)
  - Haematochezia [Unknown]
  - Haemoglobin increased [Unknown]
  - Epistaxis [Unknown]

NARRATIVE: CASE EVENT DATE: 20240101
